FAERS Safety Report 7564584-7 (Version None)
Quarter: 2011Q2

REPORT INFORMATION
  Report Type: 
  Country: None (occurrence: None)
  Receive Date: 20110622
  Receipt Date: 20100706
  Transmission Date: 20111010
  Serious: Yes (Death)
  Sender: FDA-Public Use
  Company Number: US-MYLANLABS-2010S1010668

PATIENT
  Age: 24 Year
  Sex: Male

DRUGS (6)
  1. CLOZAPINE [Suspect]
     Route: 048
     Dates: start: 20090618
  2. NAMENDA [Concomitant]
     Indication: SCHIZOPHRENIA
     Dosage: ADJUNCT THERAPY
  3. LAMICTAL [Concomitant]
  4. CLOZAPINE [Suspect]
     Indication: SCHIZOPHRENIA
     Route: 048
     Dates: start: 20090618
  5. LITHIUM [Concomitant]
  6. XANAX [Concomitant]
     Dosage: 2 HS

REACTIONS (1)
  - DEATH [None]
